FAERS Safety Report 9201740 (Version 1)
Quarter: 2013Q1

REPORT INFORMATION
  Report Type: Spontaneous
  Country: IT (occurrence: None)
  Receive Date: 20130327
  Receipt Date: 20130327
  Transmission Date: 20140127
  Serious: Yes (Hospitalization)
  Sender: FDA-Public Use
  Company Number: GER/ITL/13/0028610

PATIENT
  Age: 58 Year
  Sex: Female

DRUGS (4)
  1. CITALOPRAM [Suspect]
     Dosage: 300 MG, TOTAL, ORAL
     Route: 048
     Dates: start: 20121211, end: 20121211
  2. SEROQUEL (QUETIAPINE FUMARATE) [Suspect]
     Dosage: 25 MG, 60 IN 1 TOTAL, ORAL
     Route: 048
     Dates: start: 20121211, end: 20121211
  3. XANAX (ALPRAZOLAM) [Suspect]
     Route: 048
     Dates: start: 20121211, end: 20121211
  4. SAMYR [Suspect]
     Dosage: 200 MG, 20 IN 1 TOTAL, ORAL
     Route: 048
     Dates: start: 20121211, end: 20121211

REACTIONS (6)
  - Suicide attempt [None]
  - Loss of consciousness [None]
  - Intentional overdose [None]
  - Dysarthria [None]
  - Logorrhoea [None]
  - Agitation [None]
